FAERS Safety Report 5757093-9 (Version None)
Quarter: 2008Q2

REPORT INFORMATION
  Report Type: 
  Country: None (occurrence: None)
  Receive Date: 20080603
  Receipt Date: 20080527
  Transmission Date: 20081010
  Serious: Yes (Other)
  Sender: FDA-Public Use
  Company Number: B0523160A

PATIENT

DRUGS (7)
  1. TOPOTECAN [Suspect]
     Dosage: 2.4MGM2 PER DAY
     Route: 042
  2. DEXAMETHASONE TAB [Suspect]
     Dosage: 6MGM2 PER DAY
     Route: 048
  3. VINCRISTINE [Suspect]
     Dosage: 1.5MGM2 PER DAY
     Route: 042
  4. ASPARAGINASE [Suspect]
     Route: 030
  5. METHOTREXATE [Concomitant]
     Route: 037
  6. HYDROCORTISONE [Concomitant]
     Route: 037
  7. CYTARABINE [Concomitant]
     Route: 037

REACTIONS (1)
  - RENAL FAILURE [None]
